FAERS Safety Report 6079775-4 (Version None)
Quarter: 2009Q1

REPORT INFORMATION
  Report Type: 
  Country: None (occurrence: None)
  Receive Date: 20090211
  Receipt Date: 20090129
  Transmission Date: 20090719
  Serious: Yes (Hospitalization, Other)
  Sender: FDA-Public Use
  Company Number: 2009US000229

PATIENT
  Age: 13 Year
  Sex: Female

DRUGS (1)
  1. PROGRAF [Suspect]
     Indication: HEART TRANSPLANT
     Dosage: ORAL
     Route: 048

REACTIONS (3)
  - DRUG LEVEL INCREASED [None]
  - HYPOGLYCAEMIA [None]
  - PANCREATIC DISORDER [None]
